FAERS Safety Report 7432970-1 (Version None)
Quarter: 2011Q2

REPORT INFORMATION
  Report Type: 
  Country: None (occurrence: None)
  Receive Date: 20110422
  Receipt Date: 20110418
  Transmission Date: 20111010
  Serious: No
  Sender: FDA-Public Use
  Company Number: US-PFIZER INC-2008012270

PATIENT
  Sex: Female
  Weight: 63.492 kg

DRUGS (1)
  1. XALATAN [Suspect]
     Indication: GLAUCOMA
     Dosage: UNK

REACTIONS (2)
  - BLEPHARAL PIGMENTATION [None]
  - SKIN DISCOLOURATION [None]
